FAERS Safety Report 13862006 (Version 1)
Quarter: 2017Q3

REPORT INFORMATION
  Report Type: Spontaneous
  Country: FR (occurrence: FR)
  Receive Date: 20170812
  Receipt Date: 20170812
  Transmission Date: 20171127
  Serious: Yes (Other)
  Sender: FDA-Public Use
  Company Number: FR-MYLANLABS-2017M1048178

PATIENT

DRUGS (4)
  1. DOSTINEX [Suspect]
     Active Substance: CABERGOLINE
     Indication: HYPERPROLACTINAEMIA
     Dosage: 0.5 MG, QW
     Route: 048
     Dates: start: 201307
  2. LUTENYL [Suspect]
     Active Substance: NOMEGESTROL ACETATE
     Indication: HORMONE REPLACEMENT THERAPY
     Dosage: 2.5 MG, QD
  3. OROMONE 2 MG, COMPRIM? PELLICUL? [Suspect]
     Active Substance: ESTRADIOL
     Indication: HORMONE REPLACEMENT THERAPY
     Dosage: 2 MG, QD
     Route: 048
  4. DOSTINEX [Suspect]
     Active Substance: CABERGOLINE
     Dosage: 1.5 MG, QW
     Dates: start: 20140630, end: 20170424

REACTIONS (1)
  - Mitral valve thickening [Unknown]

NARRATIVE: CASE EVENT DATE: 20170424
